FAERS Safety Report 4544554-3 (Version None)
Quarter: 2004Q4

REPORT INFORMATION
  Report Type: 
  Country: None (occurrence: None)
  Receive Date: 20041230
  Receipt Date: 20041220
  Transmission Date: 20050328
  Serious: Yes (Death, Hospitalization)
  Sender: FDA-Public Use
  Company Number: 2004UW25861

PATIENT
  Age: 75 Year
  Sex: Male
  Weight: 93 kg

DRUGS (9)
  1. IRESSA [Suspect]
     Indication: NON-SMALL CELL LUNG CANCER
     Dosage: 250 MG BID PO
     Route: 048
     Dates: start: 20041102, end: 20041124
  2. CELECOXIB [Suspect]
     Indication: NON-SMALL CELL LUNG CANCER
     Dosage: 400 MG BID PO
     Route: 048
     Dates: start: 20041102, end: 20041124
  3. ATENOLOL [Concomitant]
  4. COMBIVENT [Concomitant]
  5. COUMADIN [Concomitant]
  6. LORATADINE [Concomitant]
  7. NIACIN [Concomitant]
  8. HYDRALAZINE [Concomitant]
  9. FLONASE [Concomitant]

REACTIONS (6)
  - CARDIAC FAILURE CONGESTIVE [None]
  - HAEMOPTYSIS [None]
  - INTERSTITIAL LUNG DISEASE [None]
  - LOBAR PNEUMONIA [None]
  - PULMONARY EMBOLISM [None]
  - PULMONARY FIBROSIS [None]
